FAERS Safety Report 7225378-5 (Version None)
Quarter: 2011Q1

REPORT INFORMATION
  Report Type: 
  Country: None (occurrence: None)
  Receive Date: 20110103
  Receipt Date: 20101222
  Transmission Date: 20110831
  Serious: Yes (Hospitalization)
  Sender: FDA-Public Use
  Company Number: 023304

PATIENT
  Sex: Female
  Weight: 68.2 kg

DRUGS (28)
  1. ALPRAZOLAM [Concomitant]
  2. AGRYLIN [Concomitant]
  3. CODIOVAN [Concomitant]
  4. LORATADINE [Concomitant]
  5. CERTOLIZUMAB PEGOL [Suspect]
     Indication: CROHN'S DISEASE
     Dosage: SEE IMAGE, SUBCUTANEOUS
     Route: 058
  6. LIBRAX [Concomitant]
  7. ZITHROMAX [Concomitant]
  8. FENOFIBRATE [Concomitant]
  9. LOPERAMIDE [Concomitant]
  10. MELOXICAM [Concomitant]
  11. PRILOSEC [Concomitant]
  12. METOPROLOL [Concomitant]
  13. NEXIUM [Concomitant]
  14. TRICOR [Concomitant]
  15. LEVAQUIN [Concomitant]
  16. ASACOL [Concomitant]
  17. QUESTRAN [Concomitant]
  18. PREDNISONE [Concomitant]
  19. METRONIDAZOLE [Concomitant]
  20. AMBIEN [Concomitant]
  21. VITAMIN B-12 [Concomitant]
  22. CYCLOBENZAPRINE [Concomitant]
  23. ROBITUSSIN [Concomitant]
  24. ZOLOFT [Concomitant]
  25. FOLBIC [Concomitant]
  26. AZITHROMYCIN [Concomitant]
  27. INFLUENZA VACCINE [Concomitant]
  28. MEDROL [Concomitant]

REACTIONS (13)
  - DIARRHOEA [None]
  - FEELING ABNORMAL [None]
  - HAEMOGLOBIN DECREASED [None]
  - AZOTAEMIA [None]
  - HYPOKALAEMIA [None]
  - WHITE BLOOD CELL COUNT INCREASED [None]
  - DEHYDRATION [None]
  - RENAL FAILURE ACUTE [None]
  - GASTROENTERITIS [None]
  - HYPOTHYROIDISM [None]
  - VOMITING [None]
  - PLATELET COUNT INCREASED [None]
  - NEPHROLITHIASIS [None]
